FAERS Safety Report 16776969 (Version 1)
Quarter: 2019Q3

REPORT INFORMATION
  Report Type: Spontaneous
  Country: US (occurrence: US)
  Receive Date: 20190716
  Receipt Date: 20190716
  Transmission Date: 20191005
  Serious: No
  Sender: FDA-Public Use
  Company Number: None

PATIENT
  Age: 60 Year
  Sex: Male

DRUGS (1)
  1. TETRABENAZIN TAB [Suspect]
     Active Substance: TETRABENAZINE
     Route: 048
     Dates: start: 20180828

REACTIONS (2)
  - Gastric disorder [None]
  - Therapy cessation [None]

NARRATIVE: CASE EVENT DATE: 20190716
